FAERS Safety Report 22081485 (Version 2)
Quarter: 2023Q2

REPORT INFORMATION
  Report Type: Spontaneous
  Country: AU (occurrence: AU)
  Receive Date: 20230310
  Receipt Date: 20230405
  Transmission Date: 20230721
  Serious: Yes (Hospitalization)
  Sender: FDA-Public Use
  Company Number: AU-AMGEN-AUSSP2023041486

PATIENT
  Age: 12 Year
  Sex: Male

DRUGS (2)
  1. XGEVA [Suspect]
     Active Substance: DENOSUMAB
     Indication: Aneurysmal bone cyst
     Dosage: 70 MILLIGRAM, Q4WK
     Route: 065
  2. CALCIUM\VITAMIN D [Concomitant]
     Active Substance: CALCIUM\VITAMIN D
     Indication: Supplementation therapy
     Route: 048

REACTIONS (5)
  - Hypercalcaemia [Recovered/Resolved]
  - Drug effective for unapproved indication [Unknown]
  - Blood parathyroid hormone increased [Unknown]
  - Off label use [Unknown]
  - Hypocalcaemia [Recovered/Resolved]
